FAERS Safety Report 5744836-3 (Version None)
Quarter: 2008Q2

REPORT INFORMATION
  Report Type: 
  Country: None (occurrence: None)
  Receive Date: 20080520
  Receipt Date: 20080512
  Transmission Date: 20081010
  Serious: Yes (Other)
  Sender: FDA-Public Use
  Company Number: GB-PFIZER INC-2008041374

PATIENT
  Age: 69 Year
  Sex: Female
  Weight: 67 kg

DRUGS (7)
  1. ATORVASTATIN CALCIUM [Suspect]
     Indication: BLOOD CHOLESTEROL INCREASED
     Route: 048
     Dates: start: 20080121, end: 20080423
  2. ACETYLSALICYLIC ACID SRT [Concomitant]
  3. BETAHISTINE [Concomitant]
     Route: 048
  4. BUSPIRONE HCL [Concomitant]
  5. FLUTICASONE [Concomitant]
  6. LAMICTAL [Concomitant]
     Route: 048
  7. TEGRETOL [Concomitant]
     Route: 048

REACTIONS (2)
  - GRAND MAL CONVULSION [None]
  - MYALGIA [None]
